FAERS Safety Report 11966144 (Version 1)
Quarter: 2016Q1

REPORT INFORMATION
  Report Type: Spontaneous
  Country: US (occurrence: None)
  Receive Date: 20160125
  Receipt Date: 20160125
  Transmission Date: 20160526
  Serious: No
  Sender: FDA-Public Use
  Company Number: None

PATIENT
  Age: 36 Year
  Sex: Female
  Weight: 86.18 kg

DRUGS (1)
  1. SUBOXONE [Suspect]
     Active Substance: BUPRENORPHINE HYDROCHLORIDE\NALOXONE HYDROCHLORIDE
     Indication: DRUG DEPENDENCE
     Dosage: 1 8MG FILM TAKEN UNDER THE TONGUE
     Dates: start: 20160103, end: 20160123

REACTIONS (2)
  - Administration site pain [None]
  - Administration site ulcer [None]

NARRATIVE: CASE EVENT DATE: 20160119
